FAERS Safety Report 25253014 (Version 2)
Quarter: 2025Q2

REPORT INFORMATION
  Report Type: Report from Study
  Country: US (occurrence: US)
  Receive Date: 20250430
  Receipt Date: 20250514
  Transmission Date: 20250717
  Serious: Yes (Other)
  Sender: ALEXION PHARMACEUTICALS
  Company Number: US-ASTRAZENECA-202502USA011186US

PATIENT

DRUGS (10)
  1. OLAPARIB [Suspect]
     Active Substance: OLAPARIB
     Indication: Ovarian cancer
     Dosage: 150 MILLIGRAM, BID
  2. OLAPARIB [Suspect]
     Active Substance: OLAPARIB
     Dosage: 150 MILLIGRAM, BID
  3. OLAPARIB [Suspect]
     Active Substance: OLAPARIB
     Dosage: INCREASED FOR NEXT FOR FOUR TO FIVE DAYS
  4. OLAPARIB [Suspect]
     Active Substance: OLAPARIB
     Dosage: 300 MILLIGRAM, BID
  5. OLAPARIB [Suspect]
     Active Substance: OLAPARIB
     Dosage: 150 MILLIGRAM, BID
  6. OLAPARIB [Suspect]
     Active Substance: OLAPARIB
  7. AVASTIN [Concomitant]
     Active Substance: BEVACIZUMAB
     Route: 065
  8. ALYMSYS [Concomitant]
     Active Substance: BEVACIZUMAB-MALY
     Route: 065
  9. PANTOPRAZOLE [Concomitant]
     Active Substance: PANTOPRAZOLE
     Route: 065
  10. ATORVASTATIN [Concomitant]
     Active Substance: ATORVASTATIN
     Route: 065

REACTIONS (11)
  - Nausea [Recovering/Resolving]
  - Dizziness [Recovering/Resolving]
  - Intentional underdose [Unknown]
  - Hypersensitivity [Unknown]
  - Chest pain [Recovering/Resolving]
  - Abdominal distension [Recovering/Resolving]
  - Pharyngeal swelling [Recovered/Resolved]
  - Gastric ulcer [Unknown]
  - Weight decreased [Unknown]
  - Fatigue [Unknown]
  - Blood cholesterol increased [Unknown]
